APPROVED DRUG PRODUCT: MULTIFUGE
Active Ingredient: PIPERAZINE CITRATE
Strength: EQ 500MG BASE/5ML
Dosage Form/Route: SYRUP;ORAL
Application: N009452 | Product #001
Applicant: BLULINE LABORATORIES INC
Approved: Approved Prior to Jan 1, 1982 | RLD: No | RS: No | Type: DISCN